FAERS Safety Report 20850474 (Version 8)
Quarter: 2022Q3

REPORT INFORMATION
  Report Type: Spontaneous
  Country: US (occurrence: US)
  Receive Date: 20220519
  Receipt Date: 20220901
  Transmission Date: 20221027
  Serious: No
  Sender: FDA-Public Use
  Company Number: US-PFIZER INC-202200695024

PATIENT
  Age: 64 Year
  Sex: Female

DRUGS (2)
  1. IBRANCE [Suspect]
     Active Substance: PALBOCICLIB
     Dosage: UNK
     Dates: start: 20220506
  2. IBRANCE [Suspect]
     Active Substance: PALBOCICLIB
     Dosage: 100 MG

REACTIONS (18)
  - Product dose omission issue [Unknown]
  - Fatigue [Unknown]
  - Migraine [Recovering/Resolving]
  - Malaise [Unknown]
  - Nausea [Unknown]
  - White blood cell count decreased [Unknown]
  - Cough [Unknown]
  - Red blood cell count decreased [Unknown]
  - Rash [Recovering/Resolving]
  - Skin ulcer [Recovering/Resolving]
  - Arthralgia [Recovering/Resolving]
  - Back pain [Recovering/Resolving]
  - Musculoskeletal pain [Recovering/Resolving]
  - Facial pain [Recovering/Resolving]
  - Asthenia [Unknown]
  - Full blood count abnormal [Recovered/Resolved]
  - Rash [Unknown]
  - Vomiting [Unknown]

NARRATIVE: CASE EVENT DATE: 20220101
